FAERS Safety Report 22087920 (Version 1)
Quarter: 2023Q1

REPORT INFORMATION
  Report Type: Spontaneous
  Country: CN (occurrence: CN)
  Receive Date: 20230313
  Receipt Date: 20230313
  Transmission Date: 20230418
  Serious: Yes (Hospitalization, Other)
  Sender: FDA-Public Use
  Company Number: CN-MLMSERVICE-20230223-4122898-2

PATIENT
  Age: 75 Year
  Sex: Male

DRUGS (12)
  1. FLUOROURACIL [Suspect]
     Active Substance: FLUOROURACIL
     Indication: Metastases to bone marrow
     Dosage: CUMULATIVE DOSE: 01 CYCLICAL
     Dates: start: 20220118
  2. OXALIPLATIN [Suspect]
     Active Substance: OXALIPLATIN
     Indication: Adenocarcinoma metastatic
     Dosage: CUMULATIVE DOSE: 01 CYCLICAL
     Dates: start: 20220118
  3. LEUCOVORIN [Suspect]
     Active Substance: LEUCOVORIN
     Indication: Adenocarcinoma metastatic
     Dosage: CUMULATIVE DOSE: 01 CYCLICAL
     Dates: start: 20220118
  4. CETUXIMAB [Suspect]
     Active Substance: CETUXIMAB
     Indication: Adenocarcinoma metastatic
     Dates: start: 20220209
  5. CETUXIMAB [Suspect]
     Active Substance: CETUXIMAB
     Indication: Metastases to bone marrow
     Dates: start: 20220209
  6. LEUCOVORIN [Suspect]
     Active Substance: LEUCOVORIN
     Indication: Metastases to bone marrow
     Dosage: CUMULATIVE DOSE: 01 CYCLICAL
     Dates: start: 20220118
  7. OXALIPLATIN [Suspect]
     Active Substance: OXALIPLATIN
     Indication: Metastases to bone marrow
     Dosage: CUMULATIVE DOSE: 01 CYCLICAL
     Dates: start: 20220118
  8. FLUOROURACIL [Suspect]
     Active Substance: FLUOROURACIL
     Indication: Adenocarcinoma metastatic
     Dosage: CUMULATIVE DOSE: 01 CYCLICAL
     Dates: start: 20220118
  9. LEUCOVORIN [Suspect]
     Active Substance: LEUCOVORIN
     Indication: Rectal cancer metastatic
     Dosage: CUMULATIVE DOSE: 01 CYCLICAL
     Dates: start: 20220118
  10. OXALIPLATIN [Suspect]
     Active Substance: OXALIPLATIN
     Indication: Rectal cancer metastatic
     Dosage: CUMULATIVE DOSE: 01 CYCLICAL
     Dates: start: 20220118
  11. CETUXIMAB [Suspect]
     Active Substance: CETUXIMAB
     Indication: Rectal cancer metastatic
     Dates: start: 20220209
  12. FLUOROURACIL [Suspect]
     Active Substance: FLUOROURACIL
     Indication: Rectal cancer metastatic
     Dosage: CUMULATIVE DOSE: 01 CYCLICAL
     Dates: start: 20220118

REACTIONS (2)
  - Haemorrhage [Recovering/Resolving]
  - Myelosuppression [Recovered/Resolved]
